FAERS Safety Report 8773607 (Version 2)
Quarter: 2012Q4

REPORT INFORMATION
  Report Type: 
  Country: US (occurrence: US)
  Receive Date: 20120907
  Receipt Date: 20121012
  Transmission Date: 20130627
  Serious: Yes (Hospitalization)
  Sender: FDA-Public Use
  Company Number: US-ELI_LILLY_AND_COMPANY-US201208009641

PATIENT
  Age: 61 Year
  Sex: Female

DRUGS (3)
  1. HUMALOG 25% LISPRO, 75% NPL [Suspect]
     Indication: DIABETES MELLITUS
     Dosage: 45 u, each morning
     Dates: start: 201206
  2. HUMALOG 25% LISPRO, 75% NPL [Suspect]
     Dosage: 25 u, each evening
     Dates: start: 201206
  3. HUMALOG LISPRO [Suspect]
     Dosage: UNK UNK, prn

REACTIONS (2)
  - Arthritis [Unknown]
  - Blood pressure increased [Recovered/Resolved]
